FAERS Safety Report 6565993-5 (Version None)
Quarter: 2010Q1

REPORT INFORMATION
  Report Type: 
  Country: None (occurrence: None)
  Receive Date: 20100129
  Receipt Date: 20100129
  Transmission Date: 20100710
  Serious: No
  Sender: FDA-Public Use
  Company Number: None

PATIENT

DRUGS (1)
  1. ALENDRONATE SODIUM [Suspect]

REACTIONS (5)
  - ARTHRALGIA [None]
  - ASTHENIA [None]
  - B-CELL LYMPHOMA [None]
  - FATIGUE [None]
  - OSTEONECROSIS [None]
